FAERS Safety Report 6335558-9 (Version None)
Quarter: 2009Q3

REPORT INFORMATION
  Report Type: 
  Country: None (occurrence: None)
  Receive Date: 20090827
  Receipt Date: 20090813
  Transmission Date: 20100115
  Serious: Yes (Hospitalization)
  Sender: FDA-Public Use
  Company Number: 2009-03129

PATIENT
  Age: 50 Year
  Sex: Female

DRUGS (1)
  1. VELCADE [Suspect]
     Indication: MULTIPLE MYELOMA
     Dates: end: 20071101

REACTIONS (5)
  - ASTHENIA [None]
  - DISEASE PROGRESSION [None]
  - IRRITABLE BOWEL SYNDROME [None]
  - OSTEOMYELITIS [None]
  - SENSORIMOTOR DISORDER [None]
